FAERS Safety Report 9599399 (Version 1)
Quarter: 2013Q4

REPORT INFORMATION
  Report Type: Spontaneous
  Country: US (occurrence: US)
  Receive Date: 20131004
  Receipt Date: 20131004
  Transmission Date: 20140711
  Serious: No
  Sender: FDA-Public Use
  Company Number: US-AMGEN-USASP2013029172

PATIENT
  Age: 57 Year
  Sex: Female
  Weight: 99.77 kg

DRUGS (14)
  1. ENBREL [Suspect]
     Indication: PRODUCT USED FOR UNKNOWN INDICATION
     Dosage: 50 MG, QWK
     Route: 058
  2. METHOTREXATE [Concomitant]
     Dosage: 20 MG, UNK
  3. LEUCOVORIN                         /00566701/ [Concomitant]
     Dosage: 350 MG, UNK
  4. TRAMADOL HCL [Concomitant]
     Dosage: 50 MG, UNK
  5. METOPROLOL [Concomitant]
     Dosage: 50 MG, ER UNK
  6. VOLTAREN                           /00372301/ [Concomitant]
     Dosage: 0.1 %, UNK
  7. CALCIUM +D                         /00944201/ [Concomitant]
     Dosage: UNK
  8. OXCARBAZEPIN 1A PHARMA [Concomitant]
     Dosage: 150 MG, UNK
  9. ASPIRIN [Concomitant]
     Dosage: 81 MG, CHEWABLE,UNK
  10. LIPITOR [Concomitant]
     Dosage: 10 MG, UNK
  11. PLAQUENIL                          /00072602/ [Concomitant]
     Dosage: 200 MG, UNK
  12. MULTIVITAMINS, PLAIN [Concomitant]
     Dosage: UNK
  13. IBUPROFEN [Concomitant]
     Dosage: 100 MG, UNK
  14. CITALOPRAM [Concomitant]
     Dosage: 40 MG, UNK

REACTIONS (3)
  - Injection site pruritus [Unknown]
  - Injection site reaction [Unknown]
  - Injection site erythema [Unknown]
